FAERS Safety Report 7283362-X (Version None)
Quarter: 2011Q1

REPORT INFORMATION
  Report Type: 
  Country: None (occurrence: None)
  Receive Date: 20110125
  Receipt Date: 20110110
  Transmission Date: 20110831
  Serious: Yes (Other)
  Sender: FDA-Public Use
  Company Number: 025880

PATIENT

DRUGS (1)
  1. KEPPRA [Suspect]
     Dosage: (500 MG BID)

REACTIONS (1)
  - STUPOR [None]
